FAERS Safety Report 20405369 (Version 2)
Quarter: 2022Q2

REPORT INFORMATION
  Report Type: Spontaneous
  Country: IN (occurrence: IN)
  Receive Date: 20220131
  Receipt Date: 20220525
  Transmission Date: 20220721
  Serious: Yes (Hospitalization, Other)
  Sender: FDA-Public Use
  Company Number: IN-PFIZER INC-2020412633

PATIENT
  Age: 60 Year
  Sex: Female

DRUGS (4)
  1. PALBOCICLIB [Suspect]
     Active Substance: PALBOCICLIB
     Indication: Breast cancer metastatic
     Dosage: 125 MG, CYCLIC (ONCE A DAY FOR 21 DAYS)
     Route: 048
     Dates: start: 20190810
  2. LETROZOLE [Concomitant]
     Active Substance: LETROZOLE
     Indication: Breast cancer metastatic
     Dosage: 2.5 MG, 1X/DAY
     Dates: start: 201908
  3. GEMCAL [CALCITRIOL;CALCIUM CITRATE] [Concomitant]
     Dosage: UNK, 1X/DAY
  4. FEBUXOSTAT [Concomitant]
     Active Substance: FEBUXOSTAT
     Dosage: 40 MG, 1X/DAY

REACTIONS (8)
  - COVID-19 [Unknown]
  - Renal impairment [Unknown]
  - Mean cell volume increased [Unknown]
  - Blood creatinine increased [Unknown]
  - Haemoglobin decreased [Unknown]
  - Full blood count abnormal [Unknown]
  - Liver function test decreased [Unknown]
  - Breast pain [Unknown]

NARRATIVE: CASE EVENT DATE: 20201020
